FAERS Safety Report 5733445-8 (Version None)
Quarter: 2008Q2

REPORT INFORMATION
  Report Type: 
  Country: None (occurrence: None)
  Receive Date: 20080509
  Receipt Date: 20080409
  Transmission Date: 20081010
  Serious: Yes (Hospitalization)
  Sender: FDA-Public Use
  Company Number: US-GILEAD-2007-0014507

PATIENT
  Age: 68 Year
  Sex: Female
  Weight: 105.33 kg

DRUGS (25)
  1. LETAIRIS [Suspect]
     Dates: start: 20071107, end: 20071120
  2. LETAIRIS [Suspect]
  3. TOPROL-XL [Concomitant]
     Route: 048
  4. IMDUR [Concomitant]
     Route: 048
  5. NITROGLYCERIN [Concomitant]
     Indication: CHEST PAIN
     Route: 060
  6. ZOCOR [Concomitant]
     Route: 048
  7. ZOCOR [Concomitant]
     Route: 048
  8. NORVASC [Concomitant]
     Route: 048
  9. LASIX [Concomitant]
     Route: 048
  10. LASIX [Concomitant]
     Route: 042
     Dates: start: 20071120
  11. LANTUS [Concomitant]
     Dosage: 70/40IU
     Route: 058
  12. LANTUS [Concomitant]
     Route: 058
  13. DUONEB [Concomitant]
  14. ZAROXOLYN [Concomitant]
     Route: 048
  15. SYNTHROID [Concomitant]
     Route: 048
  16. ADVAIR HFA [Concomitant]
     Dosage: 250/50
  17. MICARDIS [Concomitant]
  18. REQUIP [Concomitant]
     Route: 048
  19. VICODIN ES [Concomitant]
     Dosage: 7.5 750MG
     Route: 048
  20. REVATIO [Concomitant]
     Route: 048
     Dates: start: 20071101
  21. COUMADIN [Concomitant]
     Route: 048
  22. LEXAPRO [Concomitant]
     Route: 048
  23. COLACE [Concomitant]
     Route: 048
  24. DIOVAN [Concomitant]
     Route: 048
  25. OXYGEN [Concomitant]
     Route: 055

REACTIONS (7)
  - BLOOD CREATININE INCREASED [None]
  - BLOOD UREA INCREASED [None]
  - DYSPNOEA [None]
  - FLUID OVERLOAD [None]
  - NAUSEA [None]
  - SWELLING [None]
  - VOMITING [None]
